FAERS Safety Report 14587960 (Version 2)
Quarter: 2018Q1

REPORT INFORMATION
  Report Type: Spontaneous
  Country: US (occurrence: US)
  Receive Date: 20180301
  Receipt Date: 20180313
  Transmission Date: 20180509
  Serious: No
  Sender: FDA-Public Use
  Company Number: US-FRESENIUS MEDICAL CARE RENAL THERAPIES GROUP-FMC-1802-000387

PATIENT
  Sex: Female
  Weight: 95 kg

DRUGS (5)
  1. NOVOLIN 70/30 [Concomitant]
     Active Substance: INSULIN HUMAN
     Dosage: AM SLIDING SCALE
  2. AMLODIPINE [Concomitant]
     Active Substance: AMLODIPINE BESYLATE
     Dosage: TAKE ONE TABLET EVERY EVENING.  HOLD IF SBP IS LESS THAN 120.
     Route: 048
  3. ATORVASTATIN [Concomitant]
     Active Substance: ATORVASTATIN
     Route: 048
  4. NOVOLIN N [Concomitant]
     Active Substance: INSULIN HUMAN
     Dosage: PM SLIDING SCALE
  5. DELFLEX WITH DEXTROSE 2.5% LOW MAGNESIUM LOW CALCIUM [Suspect]
     Active Substance: CALCIUM CHLORIDE\DEXTROSE\MAGNESIUM CHLORIDE\SODIUM CHLORIDE\SODIUM LACTATE
     Indication: END STAGE RENAL DISEASE
     Dosage: CCPD 7 DAYS PER WEEK, 5 EXCHANGES 2500 ML DWELL TIME 90 MIN PER EXCHANGE, LAST FILL VOLUME 500 ML
     Route: 033
     Dates: start: 20170829

REACTIONS (3)
  - Abdominal discomfort [Recovering/Resolving]
  - Vomiting [Recovered/Resolved]
  - Fluid retention [Recovering/Resolving]
